FAERS Safety Report 8967750 (Version 1)
Quarter: 2012Q4

REPORT INFORMATION
  Report Type: 
  Country: US (occurrence: None)
  Receive Date: 20121213
  Receipt Date: 20121213
  Transmission Date: 20130627
  Serious: Yes (Hospitalization)
  Sender: FDA-Public Use
  Company Number: None

PATIENT
  Sex: Male
  Weight: 30.7 kg

DRUGS (4)
  1. CYTARABINE [Suspect]
     Dates: end: 20121115
  2. DAUNORUBICIN [Suspect]
  3. DEXAMETHASONE [Suspect]
     Dates: end: 20121130
  4. PEG-L-ASPARAGINASE (PEGASPARGASE, ONCOSPAR) [Suspect]

REACTIONS (6)
  - Caecitis [None]
  - Tachypnoea [None]
  - Pulmonary oedema [None]
  - Respiratory alkalosis [None]
  - Aspergillosis [None]
  - Clostridium test positive [None]
